FAERS Safety Report 20884731 (Version 1)
Quarter: 2022Q2

REPORT INFORMATION
  Report Type: Other
  Country: CA (occurrence: CA)
  Receive Date: 20220527
  Receipt Date: 20220527
  Transmission Date: 20220720
  Serious: Yes (Hospitalization)
  Sender: FDA-Public Use
  Company Number: CA-APOTEX-2022AP008171

PATIENT
  Age: 7 Decade
  Sex: Male

DRUGS (5)
  1. AZITHROMYCIN [Suspect]
     Active Substance: AZITHROMYCIN
     Indication: Mycobacterium marinum infection
     Dosage: 250 MILLIGRAM, QD
     Route: 048
  2. LEVOFLOXACIN [Suspect]
     Active Substance: LEVOFLOXACIN
     Indication: Mycobacterium marinum infection
     Dosage: 750 MILLIGRAM, (THERAPY DURATION: -31 UNSPECIFIED UNIT)
     Route: 065
  3. SULFAMETHOXAZOLE\TRIMETHOPRIM [Suspect]
     Active Substance: SULFAMETHOXAZOLE\TRIMETHOPRIM
     Indication: Mycobacterium marinum infection
     Dosage: 2 DOSAGE FORM, BID (THERAPY DURATION: 59 UNIT NOT REPORTED)
     Route: 065
  4. ETHAMBUTOL [Suspect]
     Active Substance: ETHAMBUTOL HYDROCHLORIDE
     Indication: Mycobacterium marinum infection
     Dosage: 1000 MILLIGRAM, QD
     Route: 065
  5. RIFAMPIN [Suspect]
     Active Substance: RIFAMPIN
     Indication: Mycobacterium marinum infection
     Dosage: 600 MILLIGRAM, QD
     Route: 065

REACTIONS (2)
  - Rash maculo-papular [Unknown]
  - Off label use [Unknown]
